FAERS Safety Report 11805089 (Version 1)
Quarter: 2015Q4

REPORT INFORMATION
  Report Type: Spontaneous
  Country: SE (occurrence: SE)
  Receive Date: 20151206
  Receipt Date: 20151206
  Transmission Date: 20160305
  Serious: Yes (Death, Hospitalization, Other)
  Sender: FDA-Public Use
  Company Number: SE-ASTRAZENECA-2015SF20279

PATIENT
  Age: 66 Year
  Sex: Male

DRUGS (1)
  1. CRESTOR [Suspect]
     Active Substance: ROSUVASTATIN CALCIUM
     Route: 048

REACTIONS (4)
  - Pancreatic carcinoma [Unknown]
  - Rhabdomyolysis [Unknown]
  - Myocardial infarction [Fatal]
  - Circulatory collapse [Fatal]

NARRATIVE: CASE EVENT DATE: 201510
